FAERS Safety Report 6470427-5 (Version None)
Quarter: 2009Q4

REPORT INFORMATION
  Report Type: 
  Country: None (occurrence: None)
  Receive Date: 20091203
  Receipt Date: 20081126
  Transmission Date: 20100525
  Serious: No
  Sender: FDA-Public Use
  Company Number: US-AMGEN-KDL321193

PATIENT
  Sex: Female

DRUGS (2)
  1. ENBREL [Suspect]
     Indication: RHEUMATOID ARTHRITIS
  2. HUMIRA [Concomitant]

REACTIONS (3)
  - DRUG EFFECT DECREASED [None]
  - NODULE ON EXTREMITY [None]
  - RHEUMATOID ARTHRITIS [None]
